FAERS Safety Report 18190309 (Version 2)
Quarter: 2020Q3

REPORT INFORMATION
  Report Type: Spontaneous
  Country: US (occurrence: US)
  Receive Date: 20200824
  Receipt Date: 20200911
  Transmission Date: 20201103
  Serious: Yes (Life-Threatening, Other)
  Sender: FDA-Public Use
  Company Number: US-ASTRAZENECA-2020SF06300

PATIENT
  Sex: Female

DRUGS (1)
  1. SYMBICORT [Suspect]
     Active Substance: BUDESONIDE\FORMOTEROL FUMARATE DIHYDRATE
     Indication: CHRONIC OBSTRUCTIVE PULMONARY DISEASE
     Dosage: 160/4.5 MCG INHALER, TWO PUFFS TWICE A DAY
     Route: 055
     Dates: start: 201407

REACTIONS (7)
  - Device issue [Unknown]
  - Wrong technique in device usage process [Unknown]
  - Sepsis [Recovered/Resolved]
  - Renal failure [Unknown]
  - Atelectasis [Unknown]
  - Hepatic steatosis [Unknown]
  - Intentional device use issue [Unknown]
